FAERS Safety Report 16967802 (Version 2)
Quarter: 2020Q1

REPORT INFORMATION
  Report Type: Report from Study
  Country: CZ (occurrence: CZ)
  Receive Date: 20191028
  Receipt Date: 20200101
  Transmission Date: 20200409
  Serious: Yes (Hospitalization, Disabling)
  Sender: FDA-Public Use
  Company Number: CZ-BIOGEN-2019BI00799198

PATIENT
  Sex: Female

DRUGS (5)
  1. ESOPREX [Concomitant]
     Indication: DEPRESSION
     Route: 065
     Dates: start: 20170816
  2. MAGNOSOLV [Concomitant]
     Indication: MUSCLE SPASMS
     Route: 065
     Dates: start: 20170816
  3. VIGANTOL [Concomitant]
     Indication: OSTEOPOROSIS PROPHYLAXIS
     Route: 065
     Dates: start: 20151216
  4. METHYLPREDNISOLONE. [Concomitant]
     Active Substance: METHYLPREDNISOLONE
     Indication: MULTIPLE SCLEROSIS RELAPSE
     Route: 042
     Dates: start: 20190321, end: 20190426
  5. TYSABRI [Suspect]
     Active Substance: NATALIZUMAB
     Indication: MULTIPLE SCLEROSIS
     Dosage: INFUSED OVER 1 HOUR
     Route: 065
     Dates: start: 20170904, end: 20190612

REACTIONS (1)
  - Osteonecrosis [Recovered/Resolved with Sequelae]

NARRATIVE: CASE EVENT DATE: 20190501
